FAERS Safety Report 7938777 (Version 2)
Quarter: 2013Q1

REPORT INFORMATION
  Report Type: Spontaneous
  Country: US (occurrence: US)
  Receive Date: 20110510
  Receipt Date: 20130220
  Transmission Date: 20140127
  Serious: Yes (Other)
  Sender: FDA-Public Use
  Company Number: US-ASTRAZENECA-2010SE20657

PATIENT
  Age: 81 Year
  Sex: Female
  Weight: 90.7 kg

DRUGS (15)
  1. OMEPRAZOLE [Suspect]
     Route: 048
  2. CRESTOR [Suspect]
     Route: 048
  3. NEXIUM [Suspect]
     Route: 048
  4. LISINOPRIL [Concomitant]
     Route: 048
  5. METOPROLOL [Concomitant]
  6. METOPROLOL SUCCINATE [Concomitant]
     Route: 048
  7. IMDUR [Concomitant]
     Route: 048
  8. SPIRONOLACTONE [Concomitant]
     Route: 048
  9. DIGOXIN [Concomitant]
     Route: 048
  10. TRAZODONE HCL [Concomitant]
     Route: 048
  11. FISH OIL CONCENTRATE [Concomitant]
  12. HUMULIN [Concomitant]
     Dosage: 70/30 (70-30 %) TWO TIMES DAILY (60 UNIT AM, 48 UNITS PM)
     Route: 058
  13. BABY ASPIRIN [Concomitant]
     Route: 048
  14. ACTOS [Concomitant]
  15. TIMOPTIC [Concomitant]
     Dosage: 0.5 ONE DROP BOTH EYES TWICE A DAY

REACTIONS (4)
  - Colon cancer [Recovered/Resolved]
  - Weight decreased [Unknown]
  - Gastrooesophageal reflux disease [Unknown]
  - Anxiety [Unknown]
